FAERS Safety Report 22101710 (Version 3)
Quarter: 2023Q2

REPORT INFORMATION
  Report Type: Report from Study
  Country: US (occurrence: US)
  Receive Date: 20230316
  Receipt Date: 20230515
  Transmission Date: 20230722
  Serious: No
  Sender: FDA-Public Use
  Company Number: US-002147023-NVSC2023US060628

PATIENT
  Sex: Female

DRUGS (3)
  1. ILARIS [Suspect]
     Active Substance: CANAKINUMAB
     Indication: Cryopyrin associated periodic syndrome
     Dosage: 150 MG, OTHER, EVERY 8 WEEKS
     Route: 058
     Dates: start: 20191230
  2. ILARIS [Suspect]
     Active Substance: CANAKINUMAB
     Dosage: 150 MG, OTHER, EVERY 8 WEEKS
     Route: 058
     Dates: start: 20230309
  3. ILARIS [Suspect]
     Active Substance: CANAKINUMAB
     Dosage: 150 MG, OTHER, EVERY 8 WEEKS
     Route: 058
     Dates: start: 20230426

REACTIONS (1)
  - Inappropriate schedule of product administration [Unknown]
